FAERS Safety Report 9629520 (Version 2)
Quarter: 2013Q4

REPORT INFORMATION
  Report Type: Spontaneous
  Country: US (occurrence: US)
  Receive Date: 20131017
  Receipt Date: 20131210
  Transmission Date: 20140711
  Serious: Yes (Other)
  Sender: FDA-Public Use
  Company Number: US-PFIZER INC-2013296419

PATIENT
  Sex: 0

DRUGS (1)
  1. CHANTIX [Suspect]
     Dosage: UNK

REACTIONS (11)
  - Tongue blistering [Unknown]
  - Swollen tongue [Unknown]
  - Dysgeusia [Unknown]
  - Feeling abnormal [Unknown]
  - Dyspnoea [Unknown]
  - Chest discomfort [Unknown]
  - Stomatitis [Unknown]
  - Oropharyngeal pain [Unknown]
  - Glossitis [Unknown]
  - Lip swelling [Unknown]
  - Lip pain [Unknown]
